FAERS Safety Report 7633136-2 (Version None)
Quarter: 2011Q3

REPORT INFORMATION
  Report Type: 
  Country: None (occurrence: None)
  Receive Date: 20110725
  Receipt Date: 20110713
  Transmission Date: 20111222
  Serious: Yes (Other)
  Sender: FDA-Public Use
  Company Number: JP-ROCHE-757667

PATIENT
  Age: 53 Year
  Sex: Male

DRUGS (4)
  1. METHOTREXATE [Concomitant]
     Route: 048
     Dates: start: 20100401
  2. PREDNISOLONE [Concomitant]
     Route: 048
     Dates: start: 20100401
  3. ACTEMRA [Suspect]
     Indication: RHEUMATOID ARTHRITIS
     Dosage: NOTE: DOSAGE IS UNCERTAIN.
     Route: 041
  4. METHOTREXATE [Concomitant]
     Route: 048

REACTIONS (1)
  - LARGE INTESTINAL HAEMORRHAGE [None]
